FAERS Safety Report 16373112 (Version 1)
Quarter: 2019Q2

REPORT INFORMATION
  Report Type: Spontaneous
  Country: CN (occurrence: CN)
  Receive Date: 20190530
  Receipt Date: 20190530
  Transmission Date: 20190711
  Serious: Yes (Other)
  Sender: FDA-Public Use
  Company Number: CN-BAXTER-2019BAX010264

PATIENT
  Age: 52 Year
  Sex: Female
  Weight: 62.5 kg

DRUGS (4)
  1. 0.9% SODIUM CHLORIDE INJECTION [Suspect]
     Active Substance: SODIUM CHLORIDE
     Indication: MEDICATION DILUTION
     Dosage: ENDOXAN (CYCLOPHOSPHAMIDE) 900 MG + NS 45 ML
     Route: 042
     Dates: start: 20190404, end: 20190404
  2. ENDOXAN [Suspect]
     Active Substance: CYCLOPHOSPHAMIDE
     Indication: BREAST CANCER FEMALE
     Dosage: DOSAGE FORM: INJECTION, ENDOXAN (CYCLOPHOSPHAMIDE) 900 MG + NS 45 ML
     Route: 042
     Dates: start: 20190404, end: 20190404
  3. PHARMORUBICIN RD [Suspect]
     Active Substance: EPIRUBICIN
     Indication: BREAST CANCER FEMALE
     Dosage: PHARMORUBICIN RD (EPIRUBICIN HYDROCHLORIDE FOR INJECTION) 128 MG + NS 100 ML
     Route: 041
     Dates: start: 20190404, end: 20190404
  4. 0.9% SODIUM CHLORIDE INJECTION [Suspect]
     Active Substance: SODIUM CHLORIDE
     Dosage: PHARMORUBICIN RD (EPIRUBICIN HYDROCHLORIDE FOR INJECTION) 128 MG + NS 100 ML
     Route: 041
     Dates: start: 20190404, end: 20190404

REACTIONS (2)
  - Leukopenia [Recovered/Resolved]
  - Agranulocytosis [Recovered/Resolved]

NARRATIVE: CASE EVENT DATE: 20190411
